FAERS Safety Report 9022102 (Version 2)
Quarter: 2013Q1

REPORT INFORMATION
  Report Type: Report from Study
  Country: NL (occurrence: NL)
  Receive Date: 20130118
  Receipt Date: 20130125
  Transmission Date: 20140127
  Serious: Yes (Hospitalization)
  Sender: FDA-Public Use
  Company Number: NL-GLAXOSMITHKLINE-B0860657A

PATIENT
  Age: 65 None
  Sex: Female

DRUGS (14)
  1. PAZOPANIB [Suspect]
     Indication: NEOPLASM
     Dosage: 400MG PER DAY
     Route: 048
     Dates: start: 20130111
  2. PACLITAXEL [Suspect]
     Indication: NEOPLASM
     Dosage: 50MG WEEKLY
     Route: 042
     Dates: start: 20130113
  3. CARBOPLATIN [Suspect]
     Indication: NEOPLASM
     Dosage: 200MG WEEKLY
     Route: 042
     Dates: start: 20130103
  4. MAGNESIUM HYDROXIDE [Concomitant]
     Route: 048
     Dates: start: 20121219
  5. RABEPRAZOLE [Concomitant]
     Dosage: 20MG TWICE PER DAY
     Route: 048
     Dates: start: 20121219
  6. OXYCONTIN [Concomitant]
     Dosage: 20MG TWICE PER DAY
     Route: 048
     Dates: start: 20121108
  7. OXYNORM [Concomitant]
     Indication: PAIN
     Route: 048
     Dates: start: 20121108
  8. KLYX KLYSMA [Concomitant]
     Indication: CONSTIPATION
     Dosage: 120ML PER DAY
     Route: 054
     Dates: start: 20121023
  9. MEBEVERINE [Concomitant]
     Indication: CONSTIPATION
     Dosage: 200MG PER DAY
     Route: 048
     Dates: start: 20121010
  10. ETORICOXIB [Concomitant]
     Indication: PAIN
     Dosage: 60MG PER DAY
     Route: 048
     Dates: start: 20120829
  11. BISACODYL [Concomitant]
     Indication: CONSTIPATION
     Dosage: 5MG AS REQUIRED
     Route: 048
     Dates: start: 20120809
  12. DOMPERIDON [Concomitant]
     Indication: NAUSEA
     Dosage: 10MG AS REQUIRED
     Route: 048
     Dates: start: 20120216
  13. TEMAZEPAM [Concomitant]
     Indication: SUPPORTIVE CARE
     Dosage: 20MG AS REQUIRED
     Route: 048
     Dates: start: 20110809
  14. PARACETAMOL [Concomitant]
     Indication: PAIN
     Dosage: 1000MG FOUR TIMES PER DAY
     Route: 048
     Dates: start: 20110809

REACTIONS (4)
  - Nausea [Recovered/Resolved]
  - Vomiting [Recovered/Resolved]
  - Abdominal pain [Recovered/Resolved]
  - Constipation [Recovered/Resolved]
